FAERS Safety Report 24783770 (Version 1)
Quarter: 2024Q4

REPORT INFORMATION
  Report Type: Spontaneous
  Country: RU (occurrence: RU)
  Receive Date: 20241227
  Receipt Date: 20241227
  Transmission Date: 20250114
  Serious: Yes (Death, Other)
  Sender: AMGEN
  Company Number: RU-AMGEN-RUSSP2024253389

PATIENT
  Age: 52 Year
  Sex: Male

DRUGS (4)
  1. VECTIBIX [Suspect]
     Active Substance: PANITUMUMAB
     Indication: Colorectal cancer metastatic
     Dosage: UNK
     Route: 040
     Dates: start: 20240531
  2. VECTIBIX [Suspect]
     Active Substance: PANITUMUMAB
     Indication: Off label use
     Dosage: 6 MILLIGRAM/KILOGRAM, Q2WK (IV 1 TIME IN 2 WEEKS)
     Route: 040
     Dates: start: 202406
  3. LUMAKRAS [Suspect]
     Active Substance: SOTORASIB
     Indication: Colorectal cancer metastatic
     Dosage: UNK
     Route: 048
     Dates: start: 20240531
  4. LUMAKRAS [Suspect]
     Active Substance: SOTORASIB
     Dosage: 960 MILLIGRAM, QD
     Route: 048
     Dates: start: 202406, end: 202410

REACTIONS (3)
  - Metastases to bone [Fatal]
  - Off label use [Unknown]
  - Diarrhoea [Unknown]

NARRATIVE: CASE EVENT DATE: 20240101
